FAERS Safety Report 25857458 (Version 2)
Quarter: 2025Q4

REPORT INFORMATION
  Report Type: Report from Study
  Country: GB (occurrence: GB)
  Receive Date: 20250929
  Receipt Date: 20251010
  Transmission Date: 20260118
  Serious: Yes (Other)
  Sender: UCB
  Company Number: GB-UCBSA-2025059675

PATIENT
  Sex: Female

DRUGS (1)
  1. CERTOLIZUMAB PEGOL [Suspect]
     Active Substance: CERTOLIZUMAB PEGOL
     Indication: Rheumatoid arthritis
     Dosage: 200 MILLIGRAM, EV 2 WEEKS(QOW)
     Route: 058

REACTIONS (4)
  - Amyloidosis [Not Recovered/Not Resolved]
  - Rheumatoid arthritis [Unknown]
  - Therapy interrupted [Unknown]
  - Product prescribing issue [Unknown]
